FAERS Safety Report 8358515-X (Version None)
Quarter: 2012Q2

REPORT INFORMATION
  Report Type: 
  Country: None (occurrence: None)
  Receive Date: 20120514
  Receipt Date: 20120502
  Transmission Date: 20120825
  Serious: Yes (Hospitalization)
  Sender: FDA-Public Use
  Company Number: US-ACTELION-A-US2011-52979

PATIENT

DRUGS (2)
  1. TRACLEER [Suspect]
     Indication: PULMONARY ARTERIAL HYPERTENSION
     Dosage: UNK
     Route: 048
     Dates: start: 20100107
  2. COUMADIN [Concomitant]

REACTIONS (9)
  - CATHETER PLACEMENT [None]
  - ANAEMIA [None]
  - BLOOD POTASSIUM DECREASED [None]
  - CHILLS [None]
  - JUVENILE ARTHRITIS [None]
  - CHEST PAIN [None]
  - PYREXIA [None]
  - PAIN [None]
  - DYSPNOEA [None]
